FAERS Safety Report 4283283-0 (Version None)
Quarter: 2004Q1

REPORT INFORMATION
  Report Type: 
  Country: None (occurrence: None)
  Receive Date: 20040129
  Receipt Date: 20040119
  Transmission Date: 20041129
  Serious: Yes (Hospitalization)
  Sender: FDA-Public Use
  Company Number: K200400065

PATIENT
  Sex: Male

DRUGS (1)
  1. ALTACE [Suspect]
     Dosage: ORAL
     Route: 048
     Dates: start: 20030830, end: 20030901

REACTIONS (2)
  - ASTHMA [None]
  - DYSPNOEA [None]
